FAERS Safety Report 20694796 (Version 1)
Quarter: 2022Q2

REPORT INFORMATION
  Report Type: Spontaneous
  Country: US (occurrence: None)
  Receive Date: 20220408
  Receipt Date: 20220408
  Transmission Date: 20220721
  Serious: Yes (unspecified)
  Sender: FDA-Public Use
  Company Number: None

PATIENT
  Age: 58 Year
  Sex: Female
  Weight: 107.1 kg

DRUGS (7)
  1. FLUOCINONIDE [Suspect]
     Active Substance: FLUOCINONIDE
     Indication: Psoriasis
     Dosage: OTHER QUANTITY : 1 TUBE;?FREQUENCY : TWICE A DAY;?
     Route: 061
  2. FINACEA [Concomitant]
     Active Substance: AZELAIC ACID
  3. RIZATRIPTAN [Concomitant]
     Active Substance: RIZATRIPTAN
  4. clortrimazole [Concomitant]
  5. BETAMETHASONE [Concomitant]
     Active Substance: BETAMETHASONE
  6. LORATADINE [Concomitant]
     Active Substance: LORATADINE
  7. VITAMIN D3 [Concomitant]
     Active Substance: CHOLECALCIFEROL

REACTIONS (5)
  - Rash pruritic [None]
  - Rash erythematous [None]
  - Application site rash [None]
  - Insomnia [None]
  - Scar [None]

NARRATIVE: CASE EVENT DATE: 20220325
